FAERS Safety Report 6541892-X (Version None)
Quarter: 2010Q1

REPORT INFORMATION
  Report Type: 
  Country: None (occurrence: None)
  Receive Date: 20100119
  Receipt Date: 20100112
  Transmission Date: 20100710
  Serious: Yes (Other)
  Sender: FDA-Public Use
  Company Number: US-ROCHE-678973

PATIENT
  Sex: Female
  Weight: 77.3 kg

DRUGS (4)
  1. BONIVA [Suspect]
     Indication: OSTEOPOROSIS
     Route: 048
     Dates: start: 20070101
  2. ASPIRIN [Concomitant]
  3. VITAMIN C + D [Concomitant]
  4. TRAMADOL [Concomitant]

REACTIONS (2)
  - ARTHROPATHY [None]
  - BREAST CANCER [None]
